FAERS Safety Report 20127275 (Version 1)
Quarter: 2021Q4

REPORT INFORMATION
  Report Type: Spontaneous
  Country: IL (occurrence: IL)
  Receive Date: 20211129
  Receipt Date: 20211129
  Transmission Date: 20220303
  Serious: Yes (Other)
  Sender: FDA-Public Use
  Company Number: IL-TEVAIL-2021-IL-1981051

PATIENT
  Age: 76 Year
  Sex: Female

DRUGS (11)
  1. DOXORUBICIN [Suspect]
     Active Substance: DOXORUBICIN
     Indication: Chemotherapy
     Route: 065
  2. TAMOXIFEN [Suspect]
     Active Substance: TAMOXIFEN
     Indication: Radiotherapy
     Route: 065
  3. TAMOXIFEN [Suspect]
     Active Substance: TAMOXIFEN
     Indication: Hormone therapy
  4. CARBOPLATIN [Suspect]
     Active Substance: CARBOPLATIN
     Indication: Chemotherapy
     Route: 065
     Dates: start: 2017
  5. CARBOPLATIN [Suspect]
     Active Substance: CARBOPLATIN
     Route: 065
     Dates: start: 202003, end: 202008
  6. PACLITAXEL [Suspect]
     Active Substance: PACLITAXEL
     Indication: Chemotherapy
     Route: 065
  7. PACLITAXEL [Suspect]
     Active Substance: PACLITAXEL
     Route: 065
     Dates: start: 2017
  8. PACLITAXEL [Suspect]
     Active Substance: PACLITAXEL
     Route: 065
     Dates: start: 202003, end: 202008
  9. CYCLOPHOSPHAMIDE [Suspect]
     Active Substance: CYCLOPHOSPHAMIDE
     Indication: Chemotherapy
     Route: 065
  10. ARIMIDEX [Suspect]
     Active Substance: ANASTROZOLE
     Indication: Hormone therapy
     Route: 065
  11. ARIMIDEX [Suspect]
     Active Substance: ANASTROZOLE
     Indication: Radiotherapy

REACTIONS (6)
  - Lung neoplasm malignant [Unknown]
  - Metastases to adrenals [Unknown]
  - Metastases to bone [Unknown]
  - Endometrial cancer stage II [Unknown]
  - Metastases to liver [Unknown]
  - Lymphadenopathy mediastinal [Unknown]
